FAERS Safety Report 5221563-2 (Version None)
Quarter: 2007Q1

REPORT INFORMATION
  Report Type: 
  Country: None (occurrence: None)
  Receive Date: 20070127
  Receipt Date: 20070117
  Transmission Date: 20070707
  Serious: Yes (Other)
  Sender: FDA-Public Use
  Company Number: US-ABBOTT-06P-163-0346346-00

PATIENT
  Sex: Female
  Weight: 63.56 kg

DRUGS (14)
  1. SYNTHROID [Suspect]
     Indication: HYPOTHYROIDISM
     Route: 048
     Dates: start: 20011030
  2. SYNTHROID [Suspect]
     Route: 048
     Dates: start: 19990101, end: 20011029
  3. LORTAB [Suspect]
     Indication: PAIN
     Route: 048
     Dates: start: 20060906, end: 20060922
  4. METAXALONE [Suspect]
     Indication: PAIN
     Route: 048
     Dates: start: 20060906, end: 20060922
  5. CLONIDINE [Concomitant]
     Indication: HYPERTENSION
     Route: 048
     Dates: start: 20030101
  6. ZESTORETIC [Concomitant]
     Indication: HYPERTENSION
     Route: 048
     Dates: start: 20020308, end: 20070108
  7. CELECOXIB [Concomitant]
     Indication: RHEUMATOID ARTHRITIS
     Route: 048
     Dates: start: 20010101
  8. CLOPIDOGREL BISULFATE [Concomitant]
     Indication: BLOOD CHOLESTEROL INCREASED
     Route: 048
     Dates: start: 20030701
  9. ZOCOR [Concomitant]
     Indication: BLOOD CHOLESTEROL INCREASED
     Route: 048
     Dates: start: 20030701
  10. DIPHENHYDRAMINE HYDROCHLORIDE [Concomitant]
     Indication: INSOMNIA
     Route: 048
     Dates: start: 20030101
  11. LANSOPRAZOLE [Concomitant]
     Indication: GASTROOESOPHAGEAL REFLUX DISEASE
     Route: 048
     Dates: start: 20040218, end: 20070108
  12. METHOCARBAMOL [Concomitant]
     Indication: PAIN
     Route: 048
     Dates: start: 20060929
  13. ASPIRIN [Concomitant]
     Indication: HYPERTENSION
     Route: 048
     Dates: start: 20030101
  14. CRESTOR [Concomitant]
     Indication: LIPIDS INCREASED
     Dates: start: 20030820, end: 20040413

REACTIONS (5)
  - ANAEMIA [None]
  - CEREBROVASCULAR ACCIDENT [None]
  - HYPERSENSITIVITY [None]
  - PRURITUS [None]
  - RASH [None]
